FAERS Safety Report 5851446-6 (Version None)
Quarter: 2008Q3

REPORT INFORMATION
  Report Type: 
  Country: None (occurrence: None)
  Receive Date: 20080820
  Receipt Date: 20080814
  Transmission Date: 20090109
  Serious: Yes (Life-Threatening, Hospitalization)
  Sender: FDA-Public Use
  Company Number: DE-BRISTOL-MYERS SQUIBB COMPANY-14305130

PATIENT
  Age: 49 Year
  Sex: Male
  Weight: 83 kg

DRUGS (3)
  1. CETUXIMAB [Suspect]
     Indication: NON-SMALL CELL LUNG CANCER
     Dosage: CETUXIMAB 2MG/ML; MOST RECENT INFUSION: 07AUG08
     Route: 040
     Dates: start: 20080807, end: 20080807
  2. CARBOPLATIN [Suspect]
     Indication: NON-SMALL CELL LUNG CANCER
     Dosage: AUC5(875MG 1 IN 3WEEKS); MOST RECENT INFUSION:07AUG08.
     Route: 042
     Dates: start: 20080807, end: 20080807
  3. GEMCITABINE [Suspect]
     Indication: NON-SMALL CELL LUNG CANCER
     Dosage: TOTAL:2424MG(1200MG/M2, 1 IN 3WEEK).
     Route: 042
     Dates: start: 20080717

REACTIONS (1)
  - PERICARDIAL EFFUSION [None]
